FAERS Safety Report 4882166-2 (Version None)
Quarter: 2006Q1

REPORT INFORMATION
  Report Type: 
  Country: None (occurrence: None)
  Receive Date: 20060117
  Receipt Date: 20060109
  Transmission Date: 20060701
  Serious: Yes (Hospitalization, Other)
  Sender: FDA-Public Use
  Company Number: US-MERCK-0601USA01060

PATIENT
  Age: 63 Year
  Sex: Female
  Weight: 47 kg

DRUGS (17)
  1. VIOXX [Suspect]
     Indication: BONE PAIN
     Route: 048
     Dates: start: 19991010
  2. VIOXX [Suspect]
     Route: 048
     Dates: end: 20020128
  3. ALLEGRA [Concomitant]
     Route: 065
  4. BIAXIN [Concomitant]
     Route: 065
  5. CLONAZEPAM [Concomitant]
     Route: 065
  6. DESOWEN [Concomitant]
     Route: 065
  7. FLONASE [Concomitant]
     Route: 065
  8. GLUCOTROL XL [Concomitant]
     Route: 065
  9. ACETAMINOPHEN AND HYDROCODONE BITARTRATE [Concomitant]
     Route: 065
  10. KLONOPIN [Concomitant]
     Route: 065
  11. LOPRESSOR [Concomitant]
     Route: 065
  12. PRILOSEC [Concomitant]
     Route: 065
  13. TRAZODONE HYDROCHLORIDE [Concomitant]
     Route: 065
  14. ULTRAM [Concomitant]
     Route: 065
  15. ZOCOR [Concomitant]
     Route: 048
  16. ZYRTEC [Concomitant]
     Route: 065
  17. TUSSIONEX (CHLORPHENIRAMINE POLISTIREX (+) HYDROCODONE POLISTIREX) [Concomitant]
     Route: 065

REACTIONS (2)
  - CEREBROVASCULAR ACCIDENT [None]
  - MYOCARDIAL INFARCTION [None]
